FAERS Safety Report 21806279 (Version 1)
Quarter: 2023Q1

REPORT INFORMATION
  Report Type: Spontaneous
  Country: US (occurrence: US)
  Receive Date: 20230102
  Receipt Date: 20230102
  Transmission Date: 20230417
  Serious: No
  Sender: FDA-Public Use
  Company Number: US-SA-SAC20221230000199

PATIENT
  Sex: Male

DRUGS (1)
  1. DUPIXENT [Suspect]
     Active Substance: DUPILUMAB
     Indication: Dermatitis atopic
     Dosage: 300 MG , QOW
     Route: 065
     Dates: start: 202102

REACTIONS (5)
  - Abdominal symptom [Unknown]
  - Condition aggravated [Unknown]
  - Abdominal discomfort [Unknown]
  - Condition aggravated [Unknown]
  - Dermatitis atopic [Unknown]
